FAERS Safety Report 10095533 (Version 2)
Quarter: 2014Q2

REPORT INFORMATION
  Report Type: Spontaneous
  Country: SE (occurrence: SE)
  Receive Date: 20140422
  Receipt Date: 20140505
  Transmission Date: 20141212
  Serious: Yes (Other)
  Sender: FDA-Public Use
  Company Number: SE-ACTAVIS-2014-07675

PATIENT
  Age: 52 Year
  Sex: Male

DRUGS (2)
  1. ANTABUS [Suspect]
     Indication: ALCOHOLISM
     Dosage: 400 MG, 3/WEEK
     Route: 048
     Dates: start: 20140324
  2. SERTRALIN                          /01011401/ [Concomitant]
     Indication: DEPRESSION
     Dosage: 100MG 1X1
     Route: 065
     Dates: start: 201309

REACTIONS (9)
  - Dizziness [Not Recovered/Not Resolved]
  - Balance disorder [Not Recovered/Not Resolved]
  - Myalgia [Not Recovered/Not Resolved]
  - Muscle tightness [Not Recovered/Not Resolved]
  - Muscle fatigue [Not Recovered/Not Resolved]
  - Headache [Not Recovered/Not Resolved]
  - Paraesthesia [Not Recovered/Not Resolved]
  - Nasopharyngitis [Not Recovered/Not Resolved]
  - Feeling abnormal [Not Recovered/Not Resolved]
